FAERS Safety Report 9331889 (Version 1)
Quarter: 2013Q2

REPORT INFORMATION
  Report Type: Spontaneous
  Country: AU (occurrence: AU)
  Receive Date: 20130605
  Receipt Date: 20130605
  Transmission Date: 20140414
  Serious: Yes (Other)
  Sender: FDA-Public Use
  Company Number: AU-009507513-1306AUS001569

PATIENT
  Age: 73 Year
  Sex: Female

DRUGS (2)
  1. RIBAVIRIN [Suspect]
     Dosage: UNK
  2. TELAPREVIR [Suspect]
     Dosage: 1125MILLIGRAM, QD

REACTIONS (2)
  - Rash [Not Recovered/Not Resolved]
  - Anaemia [Unknown]
